FAERS Safety Report 4946879-6 (Version None)
Quarter: 2006Q1

REPORT INFORMATION
  Report Type: 
  Country: None (occurrence: None)
  Receive Date: 20060317
  Receipt Date: 20060306
  Transmission Date: 20060701
  Serious: Yes (Hospitalization, Other)
  Sender: FDA-Public Use
  Company Number: 2006AC00451

PATIENT
  Age: 47 Year
  Sex: Female

DRUGS (3)
  1. LIDOCAINE [Suspect]
     Indication: SKIN TEST
     Dosage: 1% PRESERVATIVE-FREE AQUEOUS SOLUTION.
     Route: 061
  2. NOVORECTOL [Suspect]
     Indication: PROPHYLAXIS
     Dosage: LIDOCAINE CONTAINING
  3. NOVORECTOL [Suspect]
     Indication: SKIN TEST
     Dosage: LIDOCAINE CONTAINING

REACTIONS (7)
  - ANGIONEUROTIC OEDEMA [None]
  - DERMATITIS [None]
  - DRUG HYPERSENSITIVITY [None]
  - DYSPNOEA [None]
  - ERYTHEMA OF EYELID [None]
  - EYELID OEDEMA [None]
  - URTICARIA GENERALISED [None]
